FAERS Safety Report 5838847-7 (Version None)
Quarter: 2008Q3

REPORT INFORMATION
  Report Type: 
  Country: None (occurrence: None)
  Receive Date: 20080804
  Receipt Date: 20071127
  Transmission Date: 20090109
  Serious: Yes (Life-Threatening)
  Sender: FDA-Public Use
  Company Number: DSU-2007-00924

PATIENT
  Age: 45 Year
  Sex: Female

DRUGS (2)
  1. BENICAR HCT [Suspect]
     Indication: DRUG USE FOR UNKNOWN INDICATION
     Dosage: 40/25 MG (QD), PER ORAL
     Route: 048
  2. LIPITOR [Concomitant]

REACTIONS (1)
  - RENAL FAILURE ACUTE [None]
